FAERS Safety Report 4885732-3 (Version None)
Quarter: 2006Q1

REPORT INFORMATION
  Report Type: 
  Country: None (occurrence: None)
  Receive Date: 20060117
  Receipt Date: 20060105
  Transmission Date: 20060701
  Serious: Yes (Hospitalization)
  Sender: FDA-Public Use
  Company Number: HQWYE898126SEP03

PATIENT
  Age: 73 Year
  Sex: Female

DRUGS (6)
  1. PANTOPRAZOLE SODIUM [Suspect]
     Dosage: ORAL/ABOUT 2-3 MONTHS
     Route: 048
     Dates: start: 20030101, end: 20030717
  2. GLYBURIDE [Suspect]
     Indication: DIABETES MELLITUS NON-INSULIN-DEPENDENT
     Dosage: THREE TIMES DAILY, ORAL
     Route: 048
     Dates: end: 20030717
  3. GLUCOPHAGE [Suspect]
     Indication: DIABETES MELLITUS NON-INSULIN-DEPENDENT
     Dosage: 500 MG, ORAL
     Route: 048
     Dates: end: 20030717
  4. RAMIPRIL [Concomitant]
  5. SPECIAFOLDINE (FOLIC ACID) [Concomitant]
  6. ACETAMINOPHEN [Concomitant]

REACTIONS (10)
  - ANOREXIA [None]
  - ANTINUCLEAR ANTIBODY POSITIVE [None]
  - ASPIRATION BONE MARROW ABNORMAL [None]
  - BLOOD GLUCOSE DECREASED [None]
  - CARDIO-RESPIRATORY ARREST [None]
  - CONDITION AGGRAVATED [None]
  - COOMBS NEGATIVE HAEMOLYTIC ANAEMIA [None]
  - NORMOCHROMIC NORMOCYTIC ANAEMIA [None]
  - VITAMIN B12 DEFICIENCY [None]
  - WEIGHT DECREASED [None]
